FAERS Safety Report 7277107-7 (Version None)
Quarter: 2011Q1

REPORT INFORMATION
  Report Type: 
  Country: None (occurrence: None)
  Receive Date: 20110202
  Receipt Date: 20110202
  Transmission Date: 20110831
  Serious: Yes (Other)
  Sender: FDA-Public Use
  Company Number: None

PATIENT
  Sex: Female
  Weight: 167.8309 kg

DRUGS (8)
  1. PREDNISONE [Suspect]
     Indication: DRUG HYPERSENSITIVITY
     Dosage: 20 MG. 4 PILLS 4 DAYS IN MORN.
     Dates: start: 20101229
  2. PREDNISONE [Suspect]
     Indication: JOINT INJECTION
     Dosage: 20 MG. 4 PILLS 4 DAYS IN MORN.
     Dates: start: 20101229
  3. PREDNISONE [Suspect]
     Indication: DRUG HYPERSENSITIVITY
     Dosage: 20 MG. 4 PILLS 4 DAYS IN MORN.
     Dates: start: 20101230
  4. PREDNISONE [Suspect]
     Indication: JOINT INJECTION
     Dosage: 20 MG. 4 PILLS 4 DAYS IN MORN.
     Dates: start: 20101230
  5. PREDNISONE [Suspect]
     Indication: DRUG HYPERSENSITIVITY
     Dosage: 20 MG. 4 PILLS 4 DAYS IN MORN.
     Dates: start: 20101228
  6. PREDNISONE [Suspect]
     Indication: JOINT INJECTION
     Dosage: 20 MG. 4 PILLS 4 DAYS IN MORN.
     Dates: start: 20101228
  7. PREDNISONE [Suspect]
     Indication: DRUG HYPERSENSITIVITY
     Dosage: 20 MG. 4 PILLS 4 DAYS IN MORN.
     Dates: start: 20101231
  8. PREDNISONE [Suspect]
     Indication: JOINT INJECTION
     Dosage: 20 MG. 4 PILLS 4 DAYS IN MORN.
     Dates: start: 20101231

REACTIONS (3)
  - VIOLENCE-RELATED SYMPTOM [None]
  - ANGER [None]
  - PERSONALITY CHANGE [None]
